FAERS Safety Report 8572205-X (Version None)
Quarter: 2012Q3

REPORT INFORMATION
  Report Type: 
  Country: None (occurrence: None)
  Receive Date: 20120806
  Receipt Date: 20120724
  Transmission Date: 20120928
  Serious: Yes (Death)
  Sender: FDA-Public Use
  Company Number: JP-ASTELLAS-2012US004322

PATIENT
  Sex: Male

DRUGS (4)
  1. MEROPEN                            /01250501/ [Concomitant]
     Indication: PRODUCT USED FOR UNKNOWN INDICATION
     Dosage: UNK
     Route: 065
     Dates: start: 20120315, end: 20120322
  2. INOVAN                             /00360702/ [Concomitant]
     Indication: PRODUCT USED FOR UNKNOWN INDICATION
     Dosage: UNK
     Route: 065
     Dates: start: 20120315, end: 20120315
  3. AMBISOME [Suspect]
     Indication: FUNGAL INFECTION
     Dosage: 150 MG, UID/QD
     Route: 041
     Dates: start: 20120316, end: 20120322
  4. AMBISOME [Suspect]
     Indication: SEPTIC SHOCK

REACTIONS (21)
  - JAUNDICE [None]
  - ANAEMIA [None]
  - HEPATITIS [None]
  - PLATELET COUNT DECREASED [None]
  - PNEUMONIA STAPHYLOCOCCAL [None]
  - PLEURAL EFFUSION [None]
  - HYPOALBUMINAEMIA [None]
  - HEPATIC FIBROSIS [None]
  - PROTHROMBIN TIME PROLONGED [None]
  - CONDITION AGGRAVATED [None]
  - GENERALISED OEDEMA [None]
  - HAEMORRHAGIC DIATHESIS [None]
  - ASCITES [None]
  - MULTI-ORGAN FAILURE [None]
  - RIGHT VENTRICULAR FAILURE [None]
  - FUNGAL INFECTION [None]
  - HYPERBILIRUBINAEMIA [None]
  - HAEMODYNAMIC INSTABILITY [None]
  - PULMONARY OEDEMA [None]
  - DISEASE RECURRENCE [None]
  - HEPATIC FAILURE [None]
